FAERS Safety Report 5875850-5 (Version None)
Quarter: 2008Q3

REPORT INFORMATION
  Report Type: 
  Country: None (occurrence: None)
  Receive Date: 20080909
  Receipt Date: 20080828
  Transmission Date: 20090109
  Serious: Yes (Other)
  Sender: FDA-Public Use
  Company Number: US-PFIZER INC-2008072989

PATIENT

DRUGS (1)
  1. CHANTIX [Suspect]

REACTIONS (2)
  - DRUG ABUSE [None]
  - EUPHORIC MOOD [None]
